FAERS Safety Report 8183633-9 (Version None)
Quarter: 2012Q1

REPORT INFORMATION
  Report Type: 
  Country: None (occurrence: None)
  Receive Date: 20120130
  Receipt Date: 20111115
  Transmission Date: 20120608
  Serious: Yes (Other)
  Sender: FDA-Public Use
  Company Number: 045827

PATIENT
  Sex: Female
  Weight: 58.5 kg

DRUGS (8)
  1. KEPPRA [Suspect]
     Dosage: 1000 MG BID ORAL, 1500 MG, DOSE: 1000MG IN AM AND 500MG IN PM ORAL, 500 MG BID ORAL
     Route: 048
     Dates: start: 20110915
  2. KEPPRA [Suspect]
     Dosage: 1000 MG BID ORAL, 1500 MG, DOSE: 1000MG IN AM AND 500MG IN PM ORAL, 500 MG BID ORAL
     Route: 048
     Dates: start: 20110719, end: 20110914
  3. KEPPRA [Suspect]
     Dosage: 1000 MG BID ORAL, 1500 MG, DOSE: 1000MG IN AM AND 500MG IN PM ORAL, 500 MG BID ORAL
     Route: 048
     Dates: start: 20110601, end: 20110719
  4. METOPROLOL SUCCINATE [Concomitant]
  5. LISINOPRIL [Concomitant]
  6. BUSPAR [Concomitant]
  7. COMBIVENT [Concomitant]
  8. FLUOXETINE HCL [Concomitant]

REACTIONS (2)
  - CONVULSION [None]
  - HYPONATRAEMIA [None]
